FAERS Safety Report 25251481 (Version 3)
Quarter: 2025Q4

REPORT INFORMATION
  Report Type: Report from Study
  Country: US (occurrence: US)
  Receive Date: 20250429
  Receipt Date: 20251030
  Transmission Date: 20260117
  Serious: No
  Sender: TRAVERE THERAPEUTICS
  Company Number: US-TRAVERE-2025TVT00400

PATIENT
  Age: 52 Year
  Sex: Male

DRUGS (6)
  1. FILSPARI [Suspect]
     Active Substance: SPARSENTAN
     Indication: IgA nephropathy
     Route: 048
  2. FILSPARI [Suspect]
     Active Substance: SPARSENTAN
     Route: 048
     Dates: start: 20250319
  3. TARPEYO [Suspect]
     Active Substance: BUDESONIDE
     Indication: IgA nephropathy
  4. ALLOPURINOL [Concomitant]
     Active Substance: ALLOPURINOL
  5. PROPRANOLOL HYDROCHLORIDE [Concomitant]
     Active Substance: PROPRANOLOL HYDROCHLORIDE
  6. JARDIANCE [Concomitant]
     Active Substance: EMPAGLIFLOZIN

REACTIONS (5)
  - Contusion [Unknown]
  - Acne [Unknown]
  - Hypotension [Unknown]
  - Deep vein thrombosis [Recovered/Resolved]
  - Cellulitis [Recovered/Resolved]

NARRATIVE: CASE EVENT DATE: 20250701
